FAERS Safety Report 4808610-4 (Version None)
Quarter: 2005Q4

REPORT INFORMATION
  Report Type: 
  Country: None (occurrence: None)
  Receive Date: 20051021
  Receipt Date: 20051021
  Transmission Date: 20060501
  Serious: Yes (Other)
  Sender: FDA-Public Use
  Company Number: None

PATIENT
  Age: 57 Year
  Sex: Male
  Weight: 60 kg

DRUGS (7)
  1. DAPTOMYCIN [Suspect]
     Indication: ENTEROCOCCAL BACTERAEMIA
     Dosage: 360 MG Q24 HOURS IV DRIP
     Route: 041
     Dates: start: 20051014, end: 20051019
  2. HEPARIN [Concomitant]
  3. LANTUS [Concomitant]
  4. PREVACID [Concomitant]
  5. METRONIDAZOLE [Concomitant]
  6. EPOGEN [Concomitant]
  7. AMBIEN [Concomitant]

REACTIONS (1)
  - ARTHRALGIA [None]
